FAERS Safety Report 12019301 (Version 1)
Quarter: 2016Q1

REPORT INFORMATION
  Report Type: Report from Study
  Country: US (occurrence: US)
  Receive Date: 20160206
  Receipt Date: 20160206
  Transmission Date: 20160526
  Serious: Yes (Other)
  Sender: FDA-Public Use
  Company Number: US-ABBVIE-15K-163-1463848-00

PATIENT
  Age: 55 Year
  Sex: Male

DRUGS (2)
  1. TRAMADOL. [Concomitant]
     Active Substance: TRAMADOL
     Indication: PAIN
  2. HUMIRA [Suspect]
     Active Substance: ADALIMUMAB
     Indication: COLITIS ULCERATIVE
     Route: 065
     Dates: start: 20150415

REACTIONS (3)
  - Stevens-Johnson syndrome [Unknown]
  - Swelling face [Unknown]
  - Psoriasis [Unknown]

NARRATIVE: CASE EVENT DATE: 20150904
